FAERS Safety Report 14107742 (Version 2)
Quarter: 2017Q4

REPORT INFORMATION
  Report Type: Report from Study
  Country: US (occurrence: US)
  Receive Date: 20171019
  Receipt Date: 20171109
  Transmission Date: 20180321
  Serious: Yes (Hospitalization, Other)
  Sender: FDA-Public Use
  Company Number: US-TESARO, INC.-US-2017TSO03145

PATIENT

DRUGS (2)
  1. MIRAPEX [Concomitant]
     Active Substance: PRAMIPEXOLE DIHYDROCHLORIDE
     Indication: PRODUCT USED FOR UNKNOWN INDICATION
     Dosage: UNK
  2. ZEJULA [Suspect]
     Active Substance: NIRAPARIB
     Indication: OVARIAN CANCER
     Dosage: 300 MG, QD
     Route: 048
     Dates: start: 20170918, end: 20171004

REACTIONS (19)
  - Oropharyngeal pain [Recovering/Resolving]
  - Pharyngeal disorder [Recovering/Resolving]
  - Nausea [Not Recovered/Not Resolved]
  - Pyrexia [Recovering/Resolving]
  - Oral candidiasis [Recovering/Resolving]
  - Sleep disorder [Not Recovered/Not Resolved]
  - Stomatitis [Recovering/Resolving]
  - Vomiting [Recovering/Resolving]
  - Laryngeal disorder [Recovering/Resolving]
  - Malaise [Recovering/Resolving]
  - Constipation [Not Recovered/Not Resolved]
  - Dehydration [Recovering/Resolving]
  - Feeling jittery [Not Recovered/Not Resolved]
  - Platelet count decreased [Not Recovered/Not Resolved]
  - Eating disorder symptom [Recovering/Resolving]
  - Procedural complication [Recovering/Resolving]
  - Nervousness [Not Recovered/Not Resolved]
  - Haematemesis [Recovering/Resolving]
  - Dysphagia [Not Recovered/Not Resolved]

NARRATIVE: CASE EVENT DATE: 201709
